FAERS Safety Report 9805011 (Version 2)
Quarter: 2014Q1

REPORT INFORMATION
  Report Type: Spontaneous
  Country: US (occurrence: US)
  Receive Date: 20140109
  Receipt Date: 20140304
  Transmission Date: 20141002
  Serious: No
  Sender: FDA-Public Use
  Company Number: US-009507513-1401USA002234

PATIENT
  Age: 23 Year
  Sex: Female
  Weight: 90.7 kg

DRUGS (3)
  1. NEXPLANON [Suspect]
     Indication: CONTRACEPTION
     Dosage: UNK
     Route: 059
     Dates: start: 20130425
  2. ROBAXIN [Concomitant]
     Dosage: UNK
  3. DICLOFENAC [Concomitant]
     Dosage: UNK

REACTIONS (2)
  - Device kink [Recovered/Resolved]
  - No adverse event [Unknown]
